FAERS Safety Report 10176474 (Version 1)
Quarter: 2014Q2

REPORT INFORMATION
  Report Type: Spontaneous
  Country: FR (occurrence: FR)
  Receive Date: 20140516
  Receipt Date: 20140516
  Transmission Date: 20141212
  Serious: Yes (Other)
  Sender: FDA-Public Use
  Company Number: FR-PFIZER INC-2014130210

PATIENT
  Age: 23 Year
  Sex: Female

DRUGS (2)
  1. MINIDRIL [Suspect]
     Indication: CONTRACEPTION
     Dosage: (150UG, 30UG), IN THE EVENING
     Route: 048
  2. ST. JOHN^S WORT [Interacting]
     Dosage: UNK, IN THE MORNING

REACTIONS (4)
  - Drug interaction [Recovered/Resolved]
  - Drug ineffective [Unknown]
  - Unintended pregnancy [Unknown]
  - Abortion induced [Recovered/Resolved]
